FAERS Safety Report 7984291-6 (Version None)
Quarter: 2011Q4

REPORT INFORMATION
  Report Type: 
  Country: None (occurrence: None)
  Receive Date: 20111214
  Receipt Date: 20111111
  Transmission Date: 20120403
  Serious: Yes (Other)
  Sender: FDA-Public Use
  Company Number: USA/USA/11/0021007

PATIENT
  Sex: Male

DRUGS (1)
  1. NAPROXEN [Suspect]
     Indication: BACK PAIN
     Dosage: 10 DOSAGE FORMS, TOTAL, ORAL
     Route: 048
     Dates: start: 20110831, end: 20110831

REACTIONS (1)
  - ACCIDENTAL OVERDOSE [None]
